FAERS Safety Report 6065831-3 (Version None)
Quarter: 2009Q1

REPORT INFORMATION
  Report Type: 
  Country: None (occurrence: None)
  Receive Date: 20090205
  Receipt Date: 20090202
  Transmission Date: 20090719
  Serious: Yes (Death)
  Sender: FDA-Public Use
  Company Number: JP-JNJFOC-20090103846

PATIENT
  Sex: Male

DRUGS (12)
  1. DUROTEP [Suspect]
     Dosage: 1 EACH OF 50 UG/HR, 25 UG/HR AND 12.5 UG/HR
     Route: 062
  2. DUROTEP [Suspect]
     Indication: METASTASES TO BONE
     Dosage: 50 UG/HR AND 25 UG/HR
     Route: 062
  3. GABAPEN [Concomitant]
     Indication: METASTASES TO BONE
     Route: 048
  4. FLUVOXAMINE MALEATE [Concomitant]
     Indication: METASTASES TO BONE
     Route: 048
  5. CODEINE PHOSPHATE [Concomitant]
     Indication: METASTASES TO BONE
     Route: 048
  6. ELCITONIN [Concomitant]
     Indication: HYPERCALCAEMIA
     Dosage: 40U
     Route: 041
  7. RANITIDINE [Concomitant]
     Indication: GASTRITIS
     Route: 041
  8. HICORT [Concomitant]
     Indication: RENAL CELL CARCINOMA
     Dosage: 12-16 MG
     Route: 041
  9. PRIMPERAN TAB [Concomitant]
     Indication: NAUSEA
     Route: 041
  10. MODACIN [Concomitant]
     Indication: PYREXIA
     Route: 041
  11. MIDAZOLAM HCL [Concomitant]
     Indication: INSOMNIA
     Route: 041
  12. ROPION [Concomitant]
     Indication: METASTASES TO BONE
     Route: 041

REACTIONS (3)
  - PETECHIAE [None]
  - PURPURA [None]
  - RENAL CELL CARCINOMA [None]
